FAERS Safety Report 8134958-4 (Version None)
Quarter: 2012Q1

REPORT INFORMATION
  Report Type: 
  Country: None (occurrence: None)
  Receive Date: 20120214
  Receipt Date: 20120203
  Transmission Date: 20120608
  Serious: Yes (Other)
  Sender: FDA-Public Use
  Company Number: JP-JNJFOC-20100900112

PATIENT
  Age: 50 Year
  Sex: Male
  Weight: 65 kg

DRUGS (10)
  1. REMICADE [Suspect]
     Dosage: 4 DOSES ADMINISTERED
     Route: 042
     Dates: start: 20091124
  2. REMICADE [Suspect]
     Indication: CROHN'S DISEASE
     Dosage: 4 DOSES ADMINISTERED
     Route: 042
  3. REMICADE [Suspect]
     Dosage: 4 DOSES ADMINISTERED
     Route: 042
     Dates: start: 20100706
  4. REMICADE [Suspect]
     Dosage: 4 DOSES ADMINISTERED
     Route: 042
  5. PENTASA [Concomitant]
     Indication: CROHN'S DISEASE
     Route: 048
     Dates: start: 20090812
  6. DEPAS [Concomitant]
     Indication: ANXIETY
     Route: 048
  7. REMICADE [Suspect]
     Dosage: 4 DOSES ADMINISTERED
     Route: 042
  8. REMICADE [Suspect]
     Dosage: 4 DOSES ADMINISTERED
     Route: 042
  9. REMICADE [Suspect]
     Dosage: 4 DOSES ADMINISTERED
     Route: 042
     Dates: start: 20100511
  10. REMICADE [Suspect]
     Route: 042
     Dates: start: 20090818

REACTIONS (2)
  - DRUG SPECIFIC ANTIBODY PRESENT [None]
  - LUPUS-LIKE SYNDROME [None]
